FAERS Safety Report 21577987 (Version 18)
Quarter: 2025Q1

REPORT INFORMATION
  Report Type: Report from Study
  Country: US (occurrence: US)
  Receive Date: 20221110
  Receipt Date: 20250301
  Transmission Date: 20250409
  Serious: Yes (Hospitalization, Other)
  Sender: TAKEDA
  Company Number: US-TAKEDA-US201914768

PATIENT
  Sex: Female
  Weight: 90 kg

DRUGS (16)
  1. LANADELUMAB [Suspect]
     Active Substance: LANADELUMAB
     Indication: Immune system disorder
     Dosage: 300 MILLIGRAM, Q2WEEKS
     Dates: start: 20190313
  2. LANADELUMAB [Suspect]
     Active Substance: LANADELUMAB
     Dosage: 300 MILLIGRAM, Q2WEEKS
     Dates: start: 20220714
  3. LANADELUMAB [Suspect]
     Active Substance: LANADELUMAB
  4. DIPHENHYDRAMINE HYDROCHLORIDE [Concomitant]
     Active Substance: DIPHENHYDRAMINE HYDROCHLORIDE
  5. SODIUM CHLORIDE [Concomitant]
     Active Substance: SODIUM CHLORIDE
  6. SODIUM CHLORIDE [Concomitant]
     Active Substance: SODIUM CHLORIDE
  7. ONDANSETRON [Concomitant]
     Active Substance: ONDANSETRON
  8. STERILE WATER [Concomitant]
     Active Substance: WATER
  9. EPINEPHRINE [Concomitant]
     Active Substance: EPINEPHRINE
  10. RUCONEST [Concomitant]
     Active Substance: CONESTAT ALFA
  11. SINGULAIR [Concomitant]
     Active Substance: MONTELUKAST SODIUM
  12. XOLAIR [Concomitant]
     Active Substance: OMALIZUMAB
  13. ZYRTEC [Concomitant]
     Active Substance: CETIRIZINE HYDROCHLORIDE
  14. PROZAC [Concomitant]
     Active Substance: FLUOXETINE HYDROCHLORIDE
  15. FAMOTIDINE [Concomitant]
     Active Substance: FAMOTIDINE
  16. GABAPENTIN [Concomitant]
     Active Substance: GABAPENTIN

REACTIONS (20)
  - Pneumonia [Unknown]
  - Pulmonary embolism [Unknown]
  - Pulmonary thrombosis [Unknown]
  - Ovarian cyst ruptured [Unknown]
  - Adnexal torsion [Unknown]
  - Gastrointestinal disorder [Unknown]
  - Post procedural complication [Unknown]
  - Kidney infection [Unknown]
  - Device related infection [Unknown]
  - Sepsis [Unknown]
  - Device related sepsis [Unknown]
  - Hereditary angioedema [Not Recovered/Not Resolved]
  - Post procedural swelling [Unknown]
  - COVID-19 [Recovered/Resolved]
  - Cardiac disorder [Unknown]
  - Fall [Unknown]
  - Arthralgia [Unknown]
  - Joint injury [Unknown]
  - Product dose omission issue [Unknown]
  - Dermatitis contact [Unknown]
